FAERS Safety Report 9682723 (Version 1)
Quarter: 2013Q4

REPORT INFORMATION
  Report Type: Spontaneous
  Country: DE (occurrence: DE)
  Receive Date: 20131112
  Receipt Date: 20131112
  Transmission Date: 20140711
  Serious: Yes (Hospitalization)
  Sender: FDA-Public Use
  Company Number: DE-ASTRAZENECA-2013SE82279

PATIENT
  Age: 58 Year
  Sex: Female

DRUGS (3)
  1. SEROQUEL PROLONG [Suspect]
     Route: 048
     Dates: start: 2011
  2. SEROQUEL PROLONG [Suspect]
     Route: 048
  3. ABILIFY [Suspect]
     Route: 048

REACTIONS (3)
  - Thrombosis [Not Recovered/Not Resolved]
  - Oedema peripheral [Unknown]
  - Weight increased [Unknown]
